FAERS Safety Report 18360914 (Version 2)
Quarter: 2020Q4

REPORT INFORMATION
  Report Type: Spontaneous
  Country: FR (occurrence: FR)
  Receive Date: 20201008
  Receipt Date: 20201015
  Transmission Date: 20210114
  Serious: Yes (Hospitalization, Other)
  Sender: FDA-Public Use
  Company Number: NVSC2020FR264550

PATIENT
  Age: 52 Year
  Sex: Male

DRUGS (6)
  1. VASELINE PURE [Concomitant]
     Active Substance: PETROLATUM
     Indication: PURPURA
     Dosage: UNK
     Route: 065
  2. PREDNISONE. [Suspect]
     Active Substance: PREDNISONE
     Indication: PURPURA
     Dosage: 15 MG, QD
     Route: 065
     Dates: start: 20190103
  3. PREDNISONE. [Suspect]
     Active Substance: PREDNISONE
     Dosage: 80 MG, QD
     Route: 065
     Dates: start: 201901
  4. CLOBETASOL PROPIONATE. [Suspect]
     Active Substance: CLOBETASOL PROPIONATE
     Indication: PURPURA
     Dosage: UNK
     Route: 003
     Dates: start: 20190103
  5. PREDNISONE. [Suspect]
     Active Substance: PREDNISONE
     Dosage: UNK DECREASING DOSE
     Route: 065
  6. PREDNISONE. [Suspect]
     Active Substance: PREDNISONE
     Dosage: 1 MG/KG, QD
     Route: 065

REACTIONS (4)
  - Intentional product use issue [Unknown]
  - Drug ineffective for unapproved indication [Unknown]
  - Drug ineffective [Unknown]
  - Off label use [Unknown]

NARRATIVE: CASE EVENT DATE: 201901
